FAERS Safety Report 12216789 (Version 2)
Quarter: 2016Q2

REPORT INFORMATION
  Report Type: Spontaneous
  Country: US (occurrence: US)
  Receive Date: 20160329
  Receipt Date: 20160518
  Transmission Date: 20160815
  Serious: Yes (Hospitalization)
  Sender: FDA-Public Use
  Company Number: US-UNITED THERAPEUTICS-UNT-2016-004662

PATIENT
  Age: 57 Year
  Sex: Female
  Weight: 43.84 kg

DRUGS (2)
  1. REMODULIN [Suspect]
     Active Substance: TREPROSTINIL
     Indication: PULMONARY HYPERTENSION
     Dosage: 0.405 ?G/KG, CONTINUING
     Route: 041
     Dates: start: 20111011
  2. REMODULIN [Suspect]
     Active Substance: TREPROSTINIL
     Dosage: 0.415 ?G/KG, CONTINUING
     Route: 041

REACTIONS (2)
  - Multiple fractures [Unknown]
  - Hip fracture [Unknown]

NARRATIVE: CASE EVENT DATE: 20160320
